FAERS Safety Report 8723828 (Version 2)
Quarter: 2012Q4

REPORT INFORMATION
  Report Type: 
  Country: CH (occurrence: CH)
  Receive Date: 20120815
  Receipt Date: 20121010
  Transmission Date: 20130627
  Serious: Yes (Death)
  Sender: FDA-Public Use
  Company Number: CH-ELI_LILLY_AND_COMPANY-CH201208002693

PATIENT
  Age: 45 Year
  Sex: Male
  Weight: 95 kg

DRUGS (14)
  1. ZYPREXA [Suspect]
     Indication: SCHIZOPHRENIA
     Dosage: UNK
     Dates: start: 200106
  2. ZYPREXA [Suspect]
     Dosage: 10 mg, qd
     Dates: start: 20120403
  3. ZYPREXA [Suspect]
     Dosage: 30 mg, qd
     Dates: end: 20120706
  4. ZYPREXA [Suspect]
     Dosage: 10 mg, qd
     Dates: start: 20120706, end: 20120727
  5. INVEGA [Concomitant]
     Indication: SCHIZOPHRENIA
     Dosage: UNK
     Route: 048
     Dates: start: 20120217
  6. INVEGA [Concomitant]
     Dosage: 5 mg, qd
     Dates: start: 20120403
  7. FLOXYFRAL [Concomitant]
     Indication: SCHIZOPHRENIA
     Dosage: 100 mg, qd
     Dates: start: 200106
  8. NEBILET [Concomitant]
     Indication: ESSENTIAL HYPERTENSION
     Dosage: 5 mg, qd
     Route: 048
     Dates: start: 201005
  9. ZOCOR [Concomitant]
     Indication: DYSLIPIDAEMIA
     Dosage: UNK
     Dates: start: 200604
  10. ZOCOR [Concomitant]
     Dosage: 40 mg, qd
     Route: 048
     Dates: start: 201105
  11. EZETROL [Concomitant]
     Dosage: 10 mg, qd
     Dates: start: 200604
  12. DIAMICRON [Concomitant]
     Dosage: 30 mg, qd
     Route: 048
     Dates: start: 200708
  13. ASPIRIN CARDIO [Concomitant]
     Indication: PROPHYLAXIS
     Dosage: 100 mg, qd
     Route: 048
     Dates: start: 200509
  14. JANUMET [Concomitant]
     Dosage: 50/1000mg, bid
     Dates: start: 201010

REACTIONS (2)
  - Sudden cardiac death [Fatal]
  - Prescribed overdose [Unknown]
